FAERS Safety Report 15434329 (Version 2)
Quarter: 2018Q4

REPORT INFORMATION
  Report Type: Spontaneous
  Country: JP (occurrence: JP)
  Receive Date: 20180927
  Receipt Date: 20181119
  Transmission Date: 20190204
  Serious: Yes (Hospitalization)
  Sender: FDA-Public Use
  Company Number: JP-ACTELION-A-CH2018-174530

PATIENT
  Age: 16 Year
  Sex: Female
  Weight: 35.2 kg

DRUGS (14)
  1. OPSUMIT [Suspect]
     Active Substance: MACITENTAN
     Indication: PULMONARY ARTERIAL HYPERTENSION
     Dosage: 10 MG, QD
     Route: 048
     Dates: start: 20160406
  2. EPOPROSTENOL ACT [Suspect]
     Active Substance: EPOPROSTENOL
     Indication: PULMONARY ARTERIAL HYPERTENSION
     Dosage: 121 NG/KG, PER MIN
     Route: 042
     Dates: start: 20160106
  3. TRACLEER [Concomitant]
     Active Substance: BOSENTAN
     Indication: PULMONARY ARTERIAL HYPERTENSION
     Route: 048
  4. OXYGEN. [Concomitant]
     Active Substance: OXYGEN
  5. CEFAZOLIN [Suspect]
     Active Substance: CEFAZOLIN
     Indication: DEVICE RELATED INFECTION
     Dosage: 6 G, QD
     Route: 042
     Dates: start: 20170126, end: 20170126
  6. REVATIO [Concomitant]
     Active Substance: SILDENAFIL CITRATE
  7. FLOLAN [Concomitant]
     Active Substance: EPOPROSTENOL SODIUM
  8. INCREMIN [Concomitant]
     Active Substance: FERRIC PYROPHOSPHATE
  9. ALDACTONE A [Concomitant]
     Active Substance: SPIRONOLACTONE
  10. SLOW-K [Concomitant]
     Active Substance: POTASSIUM CHLORIDE
  11. FLUITRAN [Concomitant]
     Active Substance: TRICHLORMETHIAZIDE
  12. FERROUS SODIUM CITRATE [Concomitant]
     Active Substance: SODIUM FERROUS CITRATE
  13. OPSUMIT [Suspect]
     Active Substance: MACITENTAN
     Dosage: 10 MG, QD
     Route: 048
     Dates: start: 20150807, end: 20160209
  14. LASIX [Concomitant]
     Active Substance: FUROSEMIDE

REACTIONS (7)
  - Rash [Recovered/Resolved]
  - Autoimmune thyroiditis [Recovered/Resolved]
  - Device related infection [Recovered/Resolved]
  - Nasal congestion [Recovered/Resolved]
  - Dermatitis contact [Recovered/Resolved]
  - Face oedema [Recovered/Resolved]
  - Upper respiratory tract inflammation [Recovered/Resolved]

NARRATIVE: CASE EVENT DATE: 20160127
